FAERS Safety Report 8511196-4 (Version None)
Quarter: 2012Q2

REPORT INFORMATION
  Report Type: 
  Country: None (occurrence: None)
  Receive Date: 20120629
  Receipt Date: 20120621
  Transmission Date: 20120825
  Serious: Yes (Hospitalization)
  Sender: FDA-Public Use
  Company Number: 2012SP014525

PATIENT
  Age: 55 Year
  Sex: Male
  Weight: 71.4 kg

DRUGS (10)
  1. DEXAMETHASONE [Suspect]
     Indication: MULTIPLE MYELOMA
     Dosage: 160 GM;QM;PO ; 160 MG;QM;PO
     Route: 048
     Dates: start: 20101018, end: 20101109
  2. DEXAMETHASONE [Suspect]
     Indication: MULTIPLE MYELOMA
     Dosage: 160 GM;QM;PO ; 160 MG;QM;PO
     Route: 048
     Dates: start: 20100927, end: 20101017
  3. ENOXAPARIN SODIUM [Concomitant]
  4. VELCADE [Suspect]
     Indication: MULTIPLE MYELOMA
     Dosage: IV ; IV
     Route: 042
     Dates: start: 20100927
  5. VELCADE [Suspect]
     Indication: MULTIPLE MYELOMA
     Dosage: IV ; IV
     Route: 042
     Dates: start: 20101018, end: 20101110
  6. DOXORUBICIN HCL [Suspect]
     Indication: MULTIPLE MYELOMA
     Dosage: 64 MG;QM;IV ; 64 MG;QM;IV
     Route: 042
     Dates: start: 20100927, end: 20101017
  7. DOXORUBICIN HCL [Suspect]
     Indication: MULTIPLE MYELOMA
     Dosage: 64 MG;QM;IV ; 64 MG;QM;IV
     Route: 042
     Dates: start: 20101018, end: 20101109
  8. GABAPENTIN [Concomitant]
  9. AMOXICILLIN [Concomitant]
  10. ACETAMINOPHEN [Concomitant]

REACTIONS (4)
  - DIARRHOEA [None]
  - DRUG INEFFECTIVE [None]
  - MULTIPLE MYELOMA [None]
  - NEOPLASM PROGRESSION [None]
